FAERS Safety Report 8495821-2 (Version None)
Quarter: 2012Q3

REPORT INFORMATION
  Report Type: 
  Country: None (occurrence: None)
  Receive Date: 20120709
  Receipt Date: 20120703
  Transmission Date: 20120928
  Serious: Yes (Hospitalization)
  Sender: FDA-Public Use
  Company Number: PHHY2012DE056664

PATIENT
  Age: 62 Year
  Sex: Female

DRUGS (7)
  1. CARBAMAZEPINE [Suspect]
  2. NITRENDIPINE [Concomitant]
  3. TRAMADOL HCL [Concomitant]
  4. AZATHIOPRINE [Suspect]
     Dosage: 1.3 MG/KG/ DAY
  5. MYCOPHENOLATE MOFETIL [Suspect]
     Dosage: 1 G, QD
  6. HYDROCHLOROTHIAZIDE [Concomitant]
  7. ACETYLSALICYLIC ACID SRT [Concomitant]

REACTIONS (4)
  - GRANULOCYTOPENIA [None]
  - BACTERIAL INFECTION [None]
  - LYMPHOPENIA [None]
  - BONE MARROW FAILURE [None]
